FAERS Safety Report 6025301-5 (Version None)
Quarter: 2008Q4

REPORT INFORMATION
  Report Type: 
  Country: None (occurrence: None)
  Receive Date: 20081231
  Receipt Date: 20081223
  Transmission Date: 20090506
  Serious: Yes (Other)
  Sender: FDA-Public Use
  Company Number: PHHY2008DE33080

PATIENT
  Age: 80 Year
  Sex: Female

DRUGS (1)
  1. EXELON [Suspect]
     Indication: DEMENTIA
     Dosage: UNK
     Route: 062

REACTIONS (2)
  - MONOPLEGIA [None]
  - PAIN IN EXTREMITY [None]
